FAERS Safety Report 5256441-6 (Version None)
Quarter: 2007Q1

REPORT INFORMATION
  Report Type: 
  Country: None (occurrence: None)
  Receive Date: 20070301
  Receipt Date: 20070221
  Transmission Date: 20070707
  Serious: Yes (Death)
  Sender: FDA-Public Use
  Company Number: 2007SP002941

PATIENT
  Age: 39 Year
  Sex: Male

DRUGS (2)
  1. TEMODAR [Suspect]
     Indication: BRAIN NEOPLASM
     Dosage: 150 MG; QD; PO
     Route: 048
  2. RADIATION [Suspect]
     Indication: BRAIN NEOPLASM

REACTIONS (1)
  - FALL [None]
